FAERS Safety Report 5508943-2 (Version None)
Quarter: 2007Q4

REPORT INFORMATION
  Report Type: 
  Country: None (occurrence: None)
  Receive Date: 20071107
  Receipt Date: 20071028
  Transmission Date: 20080405
  Serious: Yes (Hospitalization)
  Sender: FDA-Public Use
  Company Number: NL-WYE-G00558407

PATIENT
  Sex: Female
  Weight: 53 kg

DRUGS (1)
  1. EFFEXOR XR [Suspect]

REACTIONS (2)
  - GASTROINTESTINAL CARCINOMA [None]
  - WEIGHT DECREASED [None]
